FAERS Safety Report 22280819 (Version 3)
Quarter: 2023Q2

REPORT INFORMATION
  Report Type: Report from Study
  Country: JP (occurrence: JP)
  Receive Date: 20230503
  Receipt Date: 20230519
  Transmission Date: 20230721
  Serious: Yes (Other)
  Sender: FDA-Public Use
  Company Number: JP-JNJFOC-20230500507

PATIENT

DRUGS (4)
  1. RISPERDAL [Suspect]
     Active Substance: RISPERIDONE
     Indication: Delirium
     Dosage: DOSE UNKNOWN
     Route: 048
  2. HALOMONTH [Suspect]
     Active Substance: HALOPERIDOL DECANOATE
     Indication: Delirium
     Dosage: DOSE UNKNOWN
     Route: 030
  3. RISPERDAL [Suspect]
     Active Substance: RISPERIDONE
     Indication: Delirium
     Dosage: DOSE UNKNOWN
     Route: 048
  4. HALOMONTH [Suspect]
     Active Substance: HALOPERIDOL DECANOATE
     Indication: Delirium
     Dosage: DOSE UNKNOWN
     Route: 030

REACTIONS (6)
  - Urinary retention [Unknown]
  - Pneumonia aspiration [Unknown]
  - Fall [Unknown]
  - Sedation [Unknown]
  - Hyperglycaemia [Unknown]
  - Off label use [Unknown]
